FAERS Safety Report 25633593 (Version 1)
Quarter: 2025Q3

REPORT INFORMATION
  Report Type: Report from Study
  Country: US (occurrence: US)
  Receive Date: 20250801
  Receipt Date: 20250801
  Transmission Date: 20251021
  Serious: Yes (Other)
  Sender: ABBVIE
  Company Number: US-ABBVIE-6397430

PATIENT
  Sex: Female

DRUGS (1)
  1. RINVOQ [Suspect]
     Active Substance: UPADACITINIB
     Indication: Rheumatoid arthritis
     Route: 048
     Dates: start: 20241101

REACTIONS (3)
  - Gallbladder disorder [Recovering/Resolving]
  - Abdominal adhesions [Recovering/Resolving]
  - Rheumatoid arthritis [Recovering/Resolving]
